FAERS Safety Report 20840404 (Version 3)
Quarter: 2022Q3

REPORT INFORMATION
  Report Type: Report from Study
  Country: TW (occurrence: TW)
  Receive Date: 20220517
  Receipt Date: 20220923
  Transmission Date: 20221027
  Serious: Yes (Death, Life-Threatening, Hospitalization)
  Sender: FDA-Public Use
  Company Number: TW-JNJFOC-20220521547

PATIENT
  Age: 62 Year
  Sex: Male
  Weight: 61.1 kg

DRUGS (14)
  1. AMIVANTAMAB [Suspect]
     Active Substance: AMIVANTAMAB
     Indication: Non-small cell lung cancer
     Route: 065
     Dates: start: 20220407, end: 20220428
  2. CARBOPLATIN [Suspect]
     Active Substance: CARBOPLATIN
     Indication: Non-small cell lung cancer
     Route: 065
     Dates: start: 20220407, end: 20220428
  3. PEMETREXED [Suspect]
     Active Substance: PEMETREXED
     Indication: Non-small cell lung cancer
     Route: 065
     Dates: start: 20220407, end: 20220428
  4. NORVASC [Concomitant]
     Active Substance: AMLODIPINE BESYLATE
     Indication: Hypertension
     Route: 048
     Dates: start: 20220330, end: 20220511
  5. CLOBETASOL [Concomitant]
     Active Substance: CLOBETASOL
     Indication: Dermatitis acneiform
     Dosage: DOSE: 1
     Route: 061
     Dates: start: 20220422, end: 20220511
  6. MOMETASONE FUROATE [Concomitant]
     Active Substance: MOMETASONE FUROATE
     Indication: Dermatitis acneiform
     Dosage: DOSE: 1 UNITS NOT PROVIDED
     Route: 061
     Dates: start: 20220422
  7. DOXYCYCLINE [Concomitant]
     Active Substance: DOXYCYCLINE
     Indication: Dermatitis acneiform
     Route: 048
     Dates: start: 20220422
  8. OLMESARTAN MEDOXOMIL [Concomitant]
     Active Substance: OLMESARTAN MEDOXOMIL
     Indication: Hypertension
     Route: 048
  9. SITAGLIPTIN/METFORMIN HCL [Concomitant]
     Indication: Diabetes mellitus
     Dosage: 50/850
     Route: 048
  10. ACETYLCYSTEINE [Concomitant]
     Active Substance: ACETYLCYSTEINE
     Indication: Non-small cell lung cancer
     Route: 048
     Dates: start: 20211201, end: 20220511
  11. MORPHINE SULFATE [Concomitant]
     Active Substance: MORPHINE SULFATE
     Indication: Non-small cell lung cancer
     Route: 048
     Dates: start: 20220309, end: 20220429
  12. BENZYDAMINE HYDROCHLORIDE [Concomitant]
     Active Substance: BENZYDAMINE HYDROCHLORIDE
     Indication: Stomatitis
     Route: 050
     Dates: start: 20220422, end: 20220505
  13. IMOLEX [Concomitant]
     Indication: Diarrhoea
     Route: 048
     Dates: start: 20220503, end: 20220511
  14. TETRACYCLINE [Concomitant]
     Active Substance: TETRACYCLINE
     Indication: Dermatitis acneiform
     Route: 061
     Dates: start: 20220505, end: 20220511

REACTIONS (2)
  - Thrombocytopenia [Not Recovered/Not Resolved]
  - Sepsis [Fatal]

NARRATIVE: CASE EVENT DATE: 20220510
